FAERS Safety Report 8957851 (Version 1)
Quarter: 2012Q4

REPORT INFORMATION
  Report Type: 
  Country: DE (occurrence: DE)
  Receive Date: 20121211
  Receipt Date: 20121211
  Transmission Date: 20130627
  Serious: Yes (Other)
  Sender: FDA-Public Use
  Company Number: DE-WATSON-2012-20811

PATIENT
  Age: 83 Year
  Sex: Male
  Weight: 58 kg

DRUGS (5)
  1. SIMVASTATIN (UNKNOWN) [Suspect]
     Indication: MYOCARDIAL INFARCTION
     Dosage: 20 mg, daily
     Route: 048
     Dates: start: 201202
  2. ACETYLSALICYLIC ACID [Suspect]
     Indication: MYOCARDIAL INFARCTION
     Dosage: 100 mg, daily
     Route: 048
     Dates: start: 201202
  3. BRILIQUE [Suspect]
     Indication: MYOCARDIAL INFARCTION
     Dosage: 180 mg, daily
     Route: 048
     Dates: start: 201202
  4. METOPROLOL [Concomitant]
     Indication: MYOCARDIAL INFARCTION
     Dosage: 47.5 mg, daily
     Route: 048
     Dates: start: 201202
  5. DELIX                              /00885601/ [Concomitant]
     Indication: MYOCARDIAL INFARCTION
     Dosage: 5 mg, daily
     Route: 048
     Dates: start: 201202

REACTIONS (1)
  - Subdural haematoma [Not Recovered/Not Resolved]
